FAERS Safety Report 25212879 (Version 5)
Quarter: 2025Q2

REPORT INFORMATION
  Report Type: Spontaneous
  Country: US (occurrence: US)
  Receive Date: 20250418
  Receipt Date: 20250519
  Transmission Date: 20250716
  Serious: Yes (Other)
  Sender: IPSEN BIOPHARMACEUTICALS, INC.
  Company Number: US-IPSEN Group, Research and Development-2025-07341

PATIENT
  Sex: Female
  Weight: 85.32 kg

DRUGS (5)
  1. IQIRVO [Suspect]
     Active Substance: ELAFIBRANOR
     Indication: Primary biliary cholangitis
     Route: 048
     Dates: start: 20241206, end: 202504
  2. METOPROLOL SUCCINATE [Concomitant]
     Active Substance: METOPROLOL SUCCINATE
  3. FLECAINIDE ACETATE [Concomitant]
     Active Substance: FLECAINIDE ACETATE
  4. ELIQUIS [Concomitant]
     Active Substance: APIXABAN
  5. URSODIOL [Concomitant]
     Active Substance: URSODIOL

REACTIONS (8)
  - Liver injury [Unknown]
  - Rhabdomyolysis [Unknown]
  - Myalgia [Not Recovered/Not Resolved]
  - Arthralgia [Unknown]
  - Rash [Unknown]
  - Swelling face [Unknown]
  - Chromaturia [Unknown]
  - Blood creatine phosphokinase increased [Unknown]
